FAERS Safety Report 16287866 (Version 1)
Quarter: 2019Q2

REPORT INFORMATION
  Report Type: Report from Study
  Country: US (occurrence: US)
  Receive Date: 20190508
  Receipt Date: 20190508
  Transmission Date: 20190711
  Serious: Yes (Other)
  Sender: FDA-Public Use
  Company Number: US-OTSUKA-2018_037093

PATIENT
  Age: 31 Year
  Sex: Male
  Weight: 77.55 kg

DRUGS (2)
  1. TOLVAPTAN [Suspect]
     Active Substance: TOLVAPTAN
     Indication: PRODUCT USED FOR UNKNOWN INDICATION
     Dosage: 45 MG, UNK
     Route: 065
     Dates: start: 20181118, end: 20190306
  2. TOLVAPTAN [Suspect]
     Active Substance: TOLVAPTAN
     Dosage: 15 MG, UNK
     Route: 065
     Dates: start: 20181118, end: 201903

REACTIONS (7)
  - Blood iron increased [Unknown]
  - Blood bilirubin increased [Unknown]
  - Thirst [Unknown]
  - Polyuria [Unknown]
  - Blood glucose increased [Unknown]
  - Polydipsia [Unknown]
  - Pollakiuria [Unknown]

NARRATIVE: CASE EVENT DATE: 20181118
